FAERS Safety Report 9521403 (Version 1)
Quarter: 2013Q3

REPORT INFORMATION
  Report Type: Spontaneous
  Country: US (occurrence: None)
  Receive Date: 20130911
  Receipt Date: 20130911
  Transmission Date: 20140515
  Serious: No
  Sender: FDA-Public Use
  Company Number: AEUSA201200504

PATIENT
  Age: 52 Year
  Sex: Male
  Weight: 92.99 kg

DRUGS (1)
  1. GAMUNEX-C (10 PCT) [Suspect]
     Indication: MULTIFOCAL MOTOR NEUROPATHY
     Route: 042
     Dates: start: 201209, end: 20121030

REACTIONS (3)
  - Infusion site pain [None]
  - Infusion site erythema [None]
  - Chills [None]
